FAERS Safety Report 9186211 (Version 1)
Quarter: 2013Q1

REPORT INFORMATION
  Report Type: Spontaneous
  Country: US (occurrence: None)
  Receive Date: 20120628
  Receipt Date: 20120628
  Transmission Date: 20140127
  Serious: Yes (Other)
  Sender: FDA-Public Use
  Company Number: PHEH2011US04107

PATIENT
  Age: 66 Year
  Sex: Female

DRUGS (2)
  1. RECLAST [Suspect]
     Indication: OSTEOPOROSIS
     Dates: start: 201108
  2. STEROIDS NOS (NO INGREDIENTS/SUBSTANCES) [Concomitant]

REACTIONS (1)
  - Iridocyclitis [None]
